FAERS Safety Report 6151871-2 (Version None)
Quarter: 2009Q2

REPORT INFORMATION
  Report Type: 
  Country: None (occurrence: None)
  Receive Date: 20090410
  Receipt Date: 20090402
  Transmission Date: 20091009
  Serious: Yes (Hospitalization)
  Sender: FDA-Public Use
  Company Number: US-ELI_LILLY_AND_COMPANY-US200904000533

PATIENT
  Sex: Female

DRUGS (2)
  1. HUMULIN R [Suspect]
     Dosage: 50 U, UNK
  2. HUMULIN R [Suspect]
     Dosage: 250 U, UNK

REACTIONS (2)
  - HOSPITALISATION [None]
  - INCORRECT DOSE ADMINISTERED [None]
